FAERS Safety Report 7226919-4 (Version None)
Quarter: 2011Q1

REPORT INFORMATION
  Report Type: 
  Country: None (occurrence: None)
  Receive Date: 20110114
  Receipt Date: 20110104
  Transmission Date: 20110831
  Serious: Yes (Other)
  Sender: FDA-Public Use
  Company Number: US-ELI_LILLY_AND_COMPANY-US201004003594

PATIENT
  Sex: Female

DRUGS (6)
  1. CALTRATE [Concomitant]
     Dosage: UNK, UNKNOWN
     Route: 065
  2. FORTEO [Suspect]
     Indication: OSTEOPOROSIS
     Dosage: 20 UG, DAILY (1/D)
     Route: 065
     Dates: start: 20091009
  3. FORTEO [Suspect]
     Dosage: 20 UG, DAILY (1/D)
  4. SYSTANE [Concomitant]
     Dosage: UNK, UNKNOWN
     Route: 065
  5. ZEGERID [Concomitant]
     Dosage: UNK, UNKNOWN
     Route: 065
  6. MULTI-VITAMIN [Concomitant]
     Dosage: UNK, UNKNOWN
     Route: 065

REACTIONS (10)
  - GAIT DISTURBANCE [None]
  - MUSCLE TIGHTNESS [None]
  - VISUAL IMPAIRMENT [None]
  - HEARING IMPAIRED [None]
  - CEREBROVASCULAR ACCIDENT [None]
  - MUSCLE DISORDER [None]
  - MEMORY IMPAIRMENT [None]
  - MUSCLE SPASMS [None]
  - BRAIN INJURY [None]
  - DYSGRAPHIA [None]
